FAERS Safety Report 7363840-5 (Version None)
Quarter: 2011Q1

REPORT INFORMATION
  Report Type: 
  Country: None (occurrence: None)
  Receive Date: 20110321
  Receipt Date: 20110314
  Transmission Date: 20110831
  Serious: Yes (Hospitalization)
  Sender: FDA-Public Use
  Company Number: DE-ROCHE-760252

PATIENT
  Sex: Male
  Weight: 74 kg

DRUGS (5)
  1. MYCOPHENOLATE MOFETIL [Suspect]
     Route: 048
     Dates: start: 20110215
  2. MYCOPHENOLATE MOFETIL [Suspect]
     Dosage: LAST DOSE PRIOR TO SAE: 15 FEBRUARY 2011.
     Route: 048
     Dates: start: 20100717
  3. TACROLIMUS [Suspect]
     Dosage: LAST DOSE PRIOR TO SAE: 15 FEBRUARY 2011.
     Route: 048
     Dates: start: 20100717
  4. PREDNISOLONE [Suspect]
     Dosage: LAST DOSE PRIOR TO SAE: 28 JULY 2010.
     Route: 048
     Dates: start: 20100717, end: 20100728
  5. BASILIXIMAB [Suspect]
     Dosage: LAST DOSE PRIOR TO SAE : 21 JULY 2010. DOSAGE FORM: LIQUID.
     Route: 048
     Dates: start: 20100717, end: 20100721

REACTIONS (2)
  - GRANULOCYTE COUNT DECREASED [None]
  - MONOCYTE COUNT INCREASED [None]
